FAERS Safety Report 6958659-0 (Version None)
Quarter: 2010Q3

REPORT INFORMATION
  Report Type: 
  Country: None (occurrence: None)
  Receive Date: 20100830
  Receipt Date: 20100830
  Transmission Date: 20110219
  Serious: Yes (Other)
  Sender: FDA-Public Use
  Company Number: None

PATIENT
  Sex: Female
  Weight: 108.8633 kg

DRUGS (1)
  1. NUCYNTA [Suspect]
     Dosage: 50 MG TID PO, APPROX 1 WK PRIOR TO EVENT
     Route: 048

REACTIONS (6)
  - DYSPHONIA [None]
  - OROPHARYNGEAL PAIN [None]
  - PALATAL DISORDER [None]
  - PALATAL OEDEMA [None]
  - SWELLING [None]
  - TONSILLAR HYPERTROPHY [None]
